FAERS Safety Report 20190402 (Version 2)
Quarter: 2022Q1

REPORT INFORMATION
  Report Type: Spontaneous
  Country: CH (occurrence: CH)
  Receive Date: 20211215
  Receipt Date: 20220115
  Transmission Date: 20220424
  Serious: Yes (Other)
  Sender: FDA-Public Use
  Company Number: CH-UCBSA-2021057773

PATIENT
  Age: 63 Year
  Sex: Female
  Weight: 58 kg

DRUGS (3)
  1. EVENITY [Suspect]
     Active Substance: ROMOSOZUMAB-AQQG
     Indication: Lumbar vertebral fracture
     Dosage: UNK, QMO
     Route: 065
     Dates: start: 20210305, end: 20211222
  2. EVENITY [Suspect]
     Active Substance: ROMOSOZUMAB-AQQG
     Indication: Osteoporosis postmenopausal
  3. ALENDRONATE [Concomitant]
     Active Substance: ALENDRONATE SODIUM
     Indication: Product used for unknown indication
     Dosage: 70 GRAM, QWK (WEEKLY (QW))
     Route: 048

REACTIONS (1)
  - Squamous cell carcinoma of the oral cavity [Unknown]

NARRATIVE: CASE EVENT DATE: 20211118
